FAERS Safety Report 24741154 (Version 2)
Quarter: 2024Q4

REPORT INFORMATION
  Report Type: Report from Study
  Country: CO (occurrence: CO)
  Receive Date: 20241217
  Receipt Date: 20241224
  Transmission Date: 20250114
  Serious: Yes (Hospitalization, Other)
  Sender: HELSINN HEALTHCARE
  Company Number: CO-HBP-2024CO031237

PATIENT
  Age: 78 Year
  Sex: Female
  Weight: 74 kg

DRUGS (3)
  1. MECHLORETHAMINE HYDROCHLORIDE [Suspect]
     Active Substance: MECHLORETHAMINE HYDROCHLORIDE
     Indication: Cutaneous T-cell lymphoma stage I
     Dosage: UNK, QD
     Route: 061
     Dates: start: 20240124, end: 20240713
  2. FOLIC ACID [Concomitant]
     Active Substance: FOLIC ACID
     Indication: Vitamin supplementation
     Dosage: 1 DOSAGE FORM (ONE TABLET) , QD
     Route: 065
  3. METHOTREXATE SODIUM [Concomitant]
     Active Substance: METHOTREXATE SODIUM
     Indication: Cutaneous T-cell lymphoma stage III
     Dosage: 10 MILLIGRAM, Q2WK
     Route: 058

REACTIONS (5)
  - Thrombocytopenia [Not Recovered/Not Resolved]
  - Pneumonia [Recovering/Resolving]
  - Cutaneous T-cell lymphoma stage III [Unknown]
  - Therapy interrupted [Unknown]
  - Product supply issue [Unknown]

NARRATIVE: CASE EVENT DATE: 20240101
